FAERS Safety Report 23987334 (Version 1)
Quarter: 2024Q2

REPORT INFORMATION
  Report Type: Spontaneous
  Country: US (occurrence: US)
  Receive Date: 20240618
  Receipt Date: 20240618
  Transmission Date: 20240716
  Serious: Yes (Life-Threatening, Other)
  Sender: FDA-Public Use
  Company Number: US-PFIZER INC-PV202400077954

PATIENT
  Age: 68 Year
  Sex: Male

DRUGS (3)
  1. VANCOMYCIN HYDROCHLORIDE [Suspect]
     Active Substance: VANCOMYCIN HYDROCHLORIDE
     Indication: Sepsis
     Dosage: UNK
  2. AMPICILLIN [Suspect]
     Active Substance: AMPICILLIN
     Indication: Sepsis
     Dosage: UNK
  3. PENICILLIN G [Suspect]
     Active Substance: PENICILLIN G
     Indication: Sepsis
     Dosage: UNK

REACTIONS (1)
  - Drug resistance [Recovering/Resolving]
